FAERS Safety Report 13438099 (Version 1)
Quarter: 2017Q2

REPORT INFORMATION
  Report Type: Spontaneous
  Country: US (occurrence: US)
  Receive Date: 20170412
  Receipt Date: 20170412
  Transmission Date: 20170830
  Serious: No
  Sender: FDA-Public Use
  Company Number: US-SA-2017SA042089

PATIENT
  Age: 67 Year
  Sex: Male

DRUGS (1)
  1. ALLEGRA ALLERGY [Suspect]
     Active Substance: FEXOFENADINE HYDROCHLORIDE
     Route: 065
     Dates: start: 20170308

REACTIONS (9)
  - Eye irritation [Unknown]
  - Lacrimation increased [Unknown]
  - Sinus disorder [Unknown]
  - Throat irritation [Unknown]
  - Rhinorrhoea [Unknown]
  - Nasal pruritus [Unknown]
  - Drug ineffective [Unknown]
  - Eye pruritus [Unknown]
  - Sneezing [Unknown]
